FAERS Safety Report 4559114-8 (Version None)
Quarter: 2005Q1

REPORT INFORMATION
  Report Type: 
  Country: None (occurrence: None)
  Receive Date: 20050124
  Receipt Date: 20050113
  Transmission Date: 20050727
  Serious: Yes (Hospitalization)
  Sender: FDA-Public Use
  Company Number: US-AMGEN-US104627

PATIENT
  Sex: Female
  Weight: 66.3 kg

DRUGS (10)
  1. NEULASTA [Suspect]
     Indication: CHEMOTHERAPY
     Route: 058
     Dates: start: 20041123, end: 20041207
  2. NEULASTA [Suspect]
     Route: 058
     Dates: start: 20041221, end: 20041221
  3. TAXOTERE [Concomitant]
     Route: 042
     Dates: start: 20041122
  4. GLUCOPHAGE [Concomitant]
     Route: 065
  5. AMARYL [Concomitant]
     Route: 065
  6. NORVASC [Concomitant]
     Route: 065
  7. AVAPRO [Concomitant]
     Route: 065
  8. LIPITOR [Concomitant]
     Route: 065
  9. XALATAN [Concomitant]
     Route: 065
  10. MOTRIN [Concomitant]
     Dates: start: 20041208

REACTIONS (4)
  - BLOOD CREATINE PHOSPHOKINASE INCREASED [None]
  - MUSCLE NECROSIS [None]
  - MYALGIA [None]
  - MYOPATHY [None]
